FAERS Safety Report 22655644 (Version 8)
Quarter: 2024Q3

REPORT INFORMATION
  Report Type: Spontaneous
  Country: IN (occurrence: IN)
  Receive Date: 20230629
  Receipt Date: 20240808
  Transmission Date: 20241016
  Serious: Yes (Other)
  Sender: PFIZER
  Company Number: IN-PFIZER INC-PV202300009637

PATIENT
  Age: 66 Year
  Sex: Female
  Weight: 71.7 kg

DRUGS (6)
  1. PALBOCICLIB [Suspect]
     Active Substance: PALBOCICLIB
     Dosage: 125 MG, 1X/DAY
     Dates: start: 20221219
  2. PALBOCICLIB [Suspect]
     Active Substance: PALBOCICLIB
     Dosage: 125 MG, CYCLIC, DAY 1 TO DAY 21 Q 28 DAYS
     Route: 048
  3. PALBOCICLIB [Suspect]
     Active Substance: PALBOCICLIB
     Dosage: 100 MG, CYCLIC, OD, DAY 1 TO DAY 21 Q 28 DAYS
     Route: 048
  4. LETROZOLE [Concomitant]
     Active Substance: LETROZOLE
     Dosage: 2.5 MG, 1X/DAY
     Route: 048
     Dates: start: 20221206
  5. CCM [CALCIUM CITRATE MALATE;COLECALCIFEROL;FOLIC ACID] [Concomitant]
     Dosage: UNK, 1X/DAY, 1 OD DAILY
  6. DENOSUMAB [Concomitant]
     Active Substance: DENOSUMAB
     Dosage: 120 MG, DAY 1
     Route: 058

REACTIONS (11)
  - Pulmonary fibrosis [Unknown]
  - Blood pressure increased [Not Recovered/Not Resolved]
  - Haemoglobin decreased [Unknown]
  - White blood cell count decreased [Unknown]
  - Blood albumin decreased [Unknown]
  - Thyroid disorder [Unknown]
  - Osteosclerosis [Unknown]
  - Blood creatine increased [Unknown]
  - Bilirubin conjugated increased [Unknown]
  - Blood calcium decreased [Unknown]
  - Blood urea increased [Unknown]

NARRATIVE: CASE EVENT DATE: 20231106
